FAERS Safety Report 10353851 (Version 2)
Quarter: 2016Q1

REPORT INFORMATION
  Report Type: Report from Study
  Country: US (occurrence: US)
  Receive Date: 20140731
  Receipt Date: 20160308
  Transmission Date: 20160525
  Serious: Yes (Other)
  Sender: FDA-Public Use
  Company Number: US-ROCHE-1441240

PATIENT
  Sex: Female
  Weight: 70.82 kg

DRUGS (8)
  1. PRILOSEC [Concomitant]
     Active Substance: OMEPRAZOLE MAGNESIUM
  2. AMBIEN [Concomitant]
     Active Substance: ZOLPIDEM TARTRATE
     Route: 065
  3. BENADRYL [Concomitant]
     Active Substance: DIPHENHYDRAMINE HYDROCHLORIDE
  4. METOPROLOL. [Concomitant]
     Active Substance: METOPROLOL
  5. NUTROPIN AQ [Suspect]
     Active Substance: SOMATROPIN
     Indication: GROWTH HORMONE DEFICIENCY
     Route: 058
  6. NUTROPIN AQ [Suspect]
     Active Substance: SOMATROPIN
     Indication: DWARFISM
  7. VITAMIN B12 [Concomitant]
     Active Substance: CYANOCOBALAMIN
     Route: 065
  8. AMINO ACIDS [Concomitant]
     Active Substance: AMINO ACIDS

REACTIONS (26)
  - Fatigue [Unknown]
  - Palpitations [Unknown]
  - Dizziness [Unknown]
  - Anxiety [Unknown]
  - Infertility [Unknown]
  - Feeling jittery [Unknown]
  - Nervousness [Unknown]
  - Onychoclasis [Unknown]
  - Temperature intolerance [Unknown]
  - Weight decreased [Unknown]
  - Muscle spasms [Unknown]
  - Dyspnoea [Unknown]
  - Syncope [Unknown]
  - Diarrhoea [Unknown]
  - Irritability [Unknown]
  - Chest pain [Unknown]
  - Weight increased [Unknown]
  - Oedema [Unknown]
  - Abdominal distension [Unknown]
  - Alopecia [Unknown]
  - Psychomotor hyperactivity [Unknown]
  - Cardiac disorder [Unknown]
  - Asthenia [Unknown]
  - Impaired gastric emptying [Unknown]
  - Hyperhidrosis [Unknown]
  - Tremor [Unknown]
